FAERS Safety Report 24553784 (Version 1)
Quarter: 2024Q4

REPORT INFORMATION
  Report Type: Report from Study
  Country: GB (occurrence: GB)
  Receive Date: 20241028
  Receipt Date: 20241028
  Transmission Date: 20250115
  Serious: No
  Sender: ROCHE
  Company Number: GB-IPSEN Group, Research and Development-2021-04717

PATIENT
  Age: 39 Year
  Sex: Male

DRUGS (1)
  1. NUTROPIN AQ [Suspect]
     Active Substance: SOMATROPIN
     Indication: Hypopituitarism
     Dosage: STRENGTH: NUTROPINAQ 10MG/2ML
     Route: 058

REACTIONS (7)
  - Malaise [Unknown]
  - Suspected product quality issue [Unknown]
  - Device delivery system issue [Unknown]
  - Device power source issue [Unknown]
  - Off label use [Unknown]
  - Product dose omission issue [Unknown]
  - Product supply issue [Unknown]

NARRATIVE: CASE EVENT DATE: 20210210
